FAERS Safety Report 9278693 (Version 1)
Quarter: 2013Q2

REPORT INFORMATION
  Report Type: Spontaneous
  Country: US (occurrence: US)
  Receive Date: 20130508
  Receipt Date: 20130508
  Transmission Date: 20140414
  Serious: No
  Sender: FDA-Public Use
  Company Number: US-PFIZER INC-2013136269

PATIENT
  Age: 66 Year
  Sex: Female

DRUGS (3)
  1. ZYVOX [Suspect]
     Indication: URINARY TRACT INFECTION
     Dosage: 600 MG, 2X/DAY
     Dates: start: 20130404
  2. VANCOMYCIN HCL [Suspect]
     Indication: CLOSTRIDIUM DIFFICILE INFECTION
     Dosage: 250 MG, EVERY 6 HOURS
     Dates: start: 20130330, end: 20130408
  3. DIFICID [Suspect]
     Dosage: 200 MG, 2X/DAY
     Dates: start: 20130406

REACTIONS (2)
  - Clostridium test positive [Unknown]
  - Nausea [Recovered/Resolved]
